FAERS Safety Report 15142548 (Version 6)
Quarter: 2019Q4

REPORT INFORMATION
  Report Type: Report from Study
  Country: US (occurrence: US)
  Receive Date: 20180713
  Receipt Date: 20191101
  Transmission Date: 20200122
  Serious: Yes (Hospitalization, Other)
  Sender: FDA-Public Use
  Company Number: US-ARIAD-2014US004346

PATIENT
  Age: 57 Year
  Sex: Female

DRUGS (5)
  1. PONATINIB [Suspect]
     Active Substance: PONATINIB
     Dosage: 15 MILLIGRAM, QD
     Route: 048
     Dates: start: 201905
  2. ASPIRIN. [Concomitant]
     Active Substance: ASPIRIN
     Indication: PRODUCT USED FOR UNKNOWN INDICATION
     Dosage: UNK
     Route: 065
  3. ALEVE [Concomitant]
     Active Substance: NAPROXEN SODIUM
     Indication: PRODUCT USED FOR UNKNOWN INDICATION
     Dosage: UNK
     Route: 065
  4. BENICAR [Concomitant]
     Active Substance: OLMESARTAN MEDOXOMIL
     Indication: PRODUCT USED FOR UNKNOWN INDICATION
     Dosage: UNK
     Route: 065
  5. PONATINIB [Suspect]
     Active Substance: PONATINIB
     Indication: CHRONIC MYELOID LEUKAEMIA
     Dosage: 15 MILLIGRAM, QD
     Route: 048
     Dates: start: 201412

REACTIONS (9)
  - Pancreatitis [Unknown]
  - Back pain [Not Recovered/Not Resolved]
  - Breast cancer [Unknown]
  - Oropharyngeal pain [Unknown]
  - Hip fracture [Unknown]
  - Arthralgia [Unknown]
  - Gallbladder disorder [Unknown]
  - Nasopharyngitis [Unknown]
  - Rash erythematous [Recovering/Resolving]

NARRATIVE: CASE EVENT DATE: 20141220
